FAERS Safety Report 4611187-X (Version None)
Quarter: 2005Q1

REPORT INFORMATION
  Report Type: 
  Country: None (occurrence: None)
  Receive Date: 20050315
  Receipt Date: 20050315
  Transmission Date: 20050727
  Serious: No
  Sender: FDA-Public Use
  Company Number: None

PATIENT
  Sex: Female
  Weight: 154.223 kg

DRUGS (1)
  1. FLUCONAZOLE [Suspect]
     Dosage: 1 PO Q WK
     Route: 048
     Dates: start: 20050219, end: 20050226

REACTIONS (2)
  - PRURITUS GENERALISED [None]
  - RASH [None]
